FAERS Safety Report 7084084-0 (Version None)
Quarter: 2010Q4

REPORT INFORMATION
  Report Type: 
  Country: None (occurrence: None)
  Receive Date: 20101026
  Receipt Date: 20101012
  Transmission Date: 20110411
  Serious: Yes (Life-Threatening, Hospitalization, Disabling, Other)
  Sender: FDA-Public Use
  Company Number: 2010P1001978

PATIENT
  Age: 49 Year
  Sex: Male
  Weight: 77.1115 kg

DRUGS (8)
  1. FENTANYL [Suspect]
     Indication: PAIN
     Dosage: 75 MCG/HR;Q42H;TDER, 75 MCG/HR:Q42H;TDER
     Route: 062
     Dates: start: 20030101, end: 20100701
  2. FENTANYL [Suspect]
     Indication: PAIN
     Dosage: 75 MCG/HR;Q42H;TDER, 75 MCG/HR:Q42H;TDER
     Route: 062
     Dates: start: 20100814
  3. FENTANYL [Suspect]
     Indication: PAIN
     Dosage: 100 MCG/HR;Q42H;TDER, 100 MCG/HR;Q42H;TDER
     Route: 062
     Dates: start: 20030101, end: 20100701
  4. FENTANYL [Suspect]
     Indication: PAIN
     Dosage: 100 MCG/HR;Q42H;TDER, 100 MCG/HR;Q42H;TDER
     Route: 062
     Dates: start: 20100814
  5. LYRICA [Concomitant]
  6. NORCO [Concomitant]
  7. VALIUM [Concomitant]
  8. ADDERALL 10 [Concomitant]

REACTIONS (12)
  - ANXIETY [None]
  - CARDIO-RESPIRATORY ARREST [None]
  - DIARRHOEA [None]
  - DRUG WITHDRAWAL SYNDROME [None]
  - ECONOMIC PROBLEM [None]
  - FAECAL INCONTINENCE [None]
  - HEART RATE DECREASED [None]
  - INAPPROPRIATE SCHEDULE OF DRUG ADMINISTRATION [None]
  - LOSS OF CONSCIOUSNESS [None]
  - NAUSEA [None]
  - PYREXIA [None]
  - VOMITING [None]
